FAERS Safety Report 8777307 (Version 2)
Quarter: 2012Q4

REPORT INFORMATION
  Report Type: 
  Country: KR (occurrence: KR)
  Receive Date: 20120911
  Receipt Date: 20121005
  Transmission Date: 20130627
  Serious: Yes (Other)
  Sender: FDA-Public Use
  Company Number: KR-ELI_LILLY_AND_COMPANY-KR201208009621

PATIENT
  Age: 61 Year
  Sex: Female

DRUGS (1)
  1. HUMALOG LISPRO [Suspect]

REACTIONS (4)
  - Blood glucose increased [Recovered/Resolved]
  - Asthenia [Unknown]
  - Weight decreased [Unknown]
  - Drug dose omission [Recovered/Resolved]
